FAERS Safety Report 7561291-1 (Version None)
Quarter: 2011Q2

REPORT INFORMATION
  Report Type: 
  Country: None (occurrence: None)
  Receive Date: 20110621
  Receipt Date: 20100609
  Transmission Date: 20111010
  Serious: No
  Sender: FDA-Public Use
  Company Number: US-ASTRAZENECA-2010SE21186

PATIENT
  Age: 5433 Day
  Sex: Female

DRUGS (6)
  1. ATARAX [Concomitant]
  2. ALBUTEROL SULFATE AUTOHALER [Concomitant]
     Indication: ASTHMA
  3. SINGULAIR [Concomitant]
  4. PREDNISOLONE [Concomitant]
  5. PULMICORT FLEXHALER [Suspect]
     Indication: ASTHMA
     Dosage: 180 MCG 3 INHALATIONS EVERYDAY
     Route: 055
  6. PULMICORT FLEXHALER [Suspect]
     Dosage: 4 PUFFS DAILY
     Route: 055
     Dates: start: 20100503

REACTIONS (4)
  - ASTHMA [None]
  - COUGH [None]
  - DYSPNOEA [None]
  - CHEST PAIN [None]
